FAERS Safety Report 22032589 (Version 1)
Quarter: 2023Q1

REPORT INFORMATION
  Report Type: Spontaneous
  Country: US (occurrence: US)
  Receive Date: 20230224
  Receipt Date: 20230224
  Transmission Date: 20230417
  Serious: No
  Sender: FDA-Public Use
  Company Number: US-GLAXOSMITHKLINE-USCH2023008065

PATIENT

DRUGS (2)
  1. FLONASE NIGHTTIME ALLERGY RELIEF [Suspect]
     Active Substance: TRIPROLIDINE HYDROCHLORIDE
     Indication: Multiple allergies
     Dosage: UNK
  2. FLUTICASONE [Suspect]
     Active Substance: FLUTICASONE
     Indication: Multiple allergies
     Dosage: UNK

REACTIONS (1)
  - Somnolence [Unknown]
